FAERS Safety Report 4554689-7 (Version None)
Quarter: 2005Q1

REPORT INFORMATION
  Report Type: 
  Country: None (occurrence: None)
  Receive Date: 20050118
  Receipt Date: 20050111
  Transmission Date: 20050727
  Serious: Yes (Hospitalization)
  Sender: FDA-Public Use
  Company Number: US-GLAXOSMITHKLINE-A0540215A

PATIENT
  Age: 84 Year
  Sex: Female
  Weight: 62 kg

DRUGS (14)
  1. ECOTRIN REGULAR STRENGTH TABLETS [Suspect]
     Indication: ANALGESIC INTERVENTION SUPPORTIVE THERAPY
     Dosage: 325MG PER DAY
     Route: 048
     Dates: start: 20020101
  2. ECOTRIN ADULT LOW STRENGTH TABLETS [Suspect]
     Indication: ANALGESIC INTERVENTION SUPPORTIVE THERAPY
     Dosage: 81MG PER DAY
     Route: 048
  3. LISINOPRIL [Concomitant]
     Indication: CARDIAC FAILURE
  4. TOPROL-XL [Concomitant]
     Indication: HYPERTENSION
  5. PRILOSEC [Concomitant]
     Indication: HIATUS HERNIA
  6. ALLEGRA [Concomitant]
     Indication: RASH
  7. COLACE [Concomitant]
     Indication: CONSTIPATION
  8. SENNA [Concomitant]
     Indication: CONSTIPATION
  9. LIPITOR [Concomitant]
     Indication: BLOOD CHOLESTEROL
  10. MULTIVITAMIN [Concomitant]
     Indication: VITAMIN SUPPLEMENTATION
  11. NITROGLYCERIN [Concomitant]
     Indication: CHEST PAIN
     Route: 060
  12. VITAMIN E [Concomitant]
  13. GARLIC [Concomitant]
     Route: 048
  14. HEART MEDICATION [Concomitant]
     Route: 048

REACTIONS (15)
  - ABASIA [None]
  - BACK PAIN [None]
  - BLOOD POTASSIUM DECREASED [None]
  - CARDIAC FAILURE [None]
  - CARDIAC VALVE DISEASE [None]
  - DEHYDRATION [None]
  - DIZZINESS [None]
  - DYSPNOEA [None]
  - FATIGUE [None]
  - GASTROOESOPHAGEAL REFLUX DISEASE [None]
  - NECK PAIN [None]
  - PAIN [None]
  - RASH [None]
  - SYNCOPE [None]
  - TOOTH FRACTURE [None]
